FAERS Safety Report 5093396-1 (Version None)
Quarter: 2006Q3

REPORT INFORMATION
  Report Type: 
  Country: None (occurrence: None)
  Receive Date: 20060828
  Receipt Date: 20060810
  Transmission Date: 20061208
  Serious: Yes (Other)
  Sender: FDA-Public Use
  Company Number: DSA_28593_2006

PATIENT
  Age: 60 Year
  Sex: Female

DRUGS (6)
  1. LORAX   /00273201/ [Suspect]
     Indication: INSOMNIA
     Dosage: 2 MG Q DAY PO
     Route: 048
     Dates: start: 19910101, end: 20060712
  2. LORAX    /00273201/ [Suspect]
     Indication: INSOMNIA
     Dosage: 1 MG Q DAY PO
     Route: 048
     Dates: start: 20060713
  3. SYNTHROID [Concomitant]
  4. ESTRADIOL INJ [Concomitant]
  5. SUPRELLE [Concomitant]
  6. NEOZINE [Concomitant]

REACTIONS (4)
  - DRUG WITHDRAWAL SYNDROME [None]
  - MALAISE [None]
  - NERVOUSNESS [None]
  - ORAL DISCOMFORT [None]
